FAERS Safety Report 23293436 (Version 1)
Quarter: 2023Q4

REPORT INFORMATION
  Report Type: Spontaneous
  Country: AU (occurrence: AU)
  Receive Date: 20231213
  Receipt Date: 20231213
  Transmission Date: 20240110
  Serious: Yes (Other)
  Sender: FDA-Public Use
  Company Number: AU-SUN PHARMACEUTICAL INDUSTRIES LTD-2023R1-422990

PATIENT
  Age: 68 Year
  Sex: Female

DRUGS (1)
  1. DOXORUBICIN HYDROCHLORIDE [Suspect]
     Active Substance: DOXORUBICIN HYDROCHLORIDE
     Indication: Product used for unknown indication
     Dosage: UNK
     Route: 065

REACTIONS (5)
  - Gastrooesophageal reflux disease [Unknown]
  - Back pain [Unknown]
  - Dyspnoea [Unknown]
  - Erythema [Unknown]
  - Vomiting [Unknown]
